FAERS Safety Report 7230316 (Version 2)
Quarter: 2020Q3

REPORT INFORMATION
  Report Type: Report from Study
  Country: US (occurrence: US)
  Receive Date: 20091224
  Receipt Date: 20100614
  Transmission Date: 20201104
  Serious: Yes (Hospitalization)
  Sender: FDA-Public Use
  Company Number: US-WYE-H12772409

PATIENT
  Age: 46 Year
  Sex: Female
  Weight: 99.88 kg

DRUGS (10)
  1. PREDNISONE. [Concomitant]
     Active Substance: PREDNISONE
     Indication: PROPHYLAXIS AGAINST TRANSPLANT REJECTION
     Dosage: UNKNOWN
     Dates: start: 20090223
  2. LORATADINE. [Concomitant]
     Active Substance: LORATADINE
     Indication: SINUS CONGESTION
     Dosage: UNKNOWN
     Dates: start: 20090917
  3. COREG [Concomitant]
     Active Substance: CARVEDILOL
     Indication: HYPERTENSION
     Dosage: UNKNOWN
  4. AMILORIDE [Concomitant]
     Active Substance: AMILORIDE
     Indication: HYPOKALAEMIA
     Dosage: UNKNOWN
     Dates: start: 20090828
  5. RAMIPRIL. [Suspect]
     Active Substance: RAMIPRIL
     Indication: PROTEINURIA
     Route: 048
     Dates: start: 20090702, end: 20091222
  6. NEURONTIN [Concomitant]
     Active Substance: GABAPENTIN
     Indication: NEUROPATHY PERIPHERAL
     Dosage: UNKNOWN
  7. LASIX [Concomitant]
     Active Substance: FUROSEMIDE
     Indication: HYPERTENSION
     Dosage: UNKNOWN
     Dates: start: 20090911
  8. MYCOPHENOLATE MOFETIL. [Concomitant]
     Active Substance: MYCOPHENOLATE MOFETIL
     Indication: PROPHYLAXIS AGAINST TRANSPLANT REJECTION
     Dosage: UNKNOWN
     Dates: start: 20081110
  9. RAPAMUNE [Suspect]
     Active Substance: SIROLIMUS
     Indication: PROPHYLAXIS AGAINST TRANSPLANT REJECTION
     Route: 048
     Dates: start: 20090804
  10. SYNTHROID [Concomitant]
     Active Substance: LEVOTHYROXINE SODIUM
     Indication: HYPOTHYROIDISM
     Dosage: UNKNOWN

REACTIONS (2)
  - Gastroenteritis [Recovered/Resolved]
  - Pyelonephritis [Recovered/Resolved]

NARRATIVE: CASE EVENT DATE: 20091217
